FAERS Safety Report 13400689 (Version 2)
Quarter: 2017Q2

REPORT INFORMATION
  Report Type: Report from Study
  Country: US (occurrence: US)
  Receive Date: 20170404
  Receipt Date: 20170419
  Transmission Date: 20170830
  Serious: Yes (Other)
  Sender: FDA-Public Use
  Company Number: US-GILEAD-2017-0262093

PATIENT
  Age: 43 Year
  Sex: Female

DRUGS (4)
  1. METOLAZONE. [Concomitant]
     Active Substance: METOLAZONE
  2. TYVASO [Suspect]
     Active Substance: TREPROSTINIL
     Indication: PRODUCT USED FOR UNKNOWN INDICATION
     Dosage: UNK
     Route: 065
  3. AMBRISENTAN [Suspect]
     Active Substance: AMBRISENTAN
     Indication: PRODUCT USED FOR UNKNOWN INDICATION
     Dosage: 10 MG, QD
     Route: 065
  4. WARFARIN [Concomitant]
     Active Substance: WARFARIN

REACTIONS (8)
  - Dizziness [Unknown]
  - Unevaluable event [Not Recovered/Not Resolved]
  - Weight increased [Unknown]
  - Urinary retention [Not Recovered/Not Resolved]
  - Tooth infection [Not Recovered/Not Resolved]
  - Feeling abnormal [Not Recovered/Not Resolved]
  - Blood glucose decreased [Not Recovered/Not Resolved]
  - Peripheral swelling [Not Recovered/Not Resolved]

NARRATIVE: CASE EVENT DATE: 201703
